FAERS Safety Report 25279695 (Version 2)
Quarter: 2025Q2

REPORT INFORMATION
  Report Type: Spontaneous
  Country: ES (occurrence: ES)
  Receive Date: 20250507
  Receipt Date: 20250515
  Transmission Date: 20250716
  Serious: Yes (Life-Threatening, Hospitalization, Disabling)
  Sender: PFIZER
  Company Number: None

PATIENT
  Age: 32 Year
  Sex: Male
  Weight: 56 kg

DRUGS (4)
  1. METHOTREXATE SODIUM [Suspect]
     Active Substance: METHOTREXATE SODIUM
     Dates: start: 2013
  2. ETANERCEPT [Suspect]
     Active Substance: ETANERCEPT
     Dates: start: 2000, end: 2012
  3. IDACIO [Suspect]
     Active Substance: ADALIMUMAB-AACF
     Indication: Juvenile idiopathic arthritis
     Route: 058
     Dates: start: 2012, end: 20250327
  4. LEFLUNOMIDE [Suspect]
     Active Substance: LEFLUNOMIDE
     Dates: start: 2001, end: 2007

REACTIONS (1)
  - Hodgkin^s disease [Unknown]

NARRATIVE: CASE EVENT DATE: 20250327
